FAERS Safety Report 13795322 (Version 1)
Quarter: 2017Q3

REPORT INFORMATION
  Report Type: Spontaneous
  Country: US (occurrence: US)
  Receive Date: 20170726
  Receipt Date: 20170726
  Transmission Date: 20171127
  Serious: Yes (Hospitalization)
  Sender: FDA-Public Use
  Company Number: US-ACTELION-A-NJ2017-157207

PATIENT
  Age: 2 Year
  Sex: Male

DRUGS (1)
  1. TRACLEER [Suspect]
     Active Substance: BOSENTAN
     Indication: PULMONARY ARTERIAL HYPERTENSION
     Dosage: 31.25 UNK, UNK
     Route: 048
     Dates: start: 20170509

REACTIONS (1)
  - Arteriovenous fistula operation [Recovered/Resolved]

NARRATIVE: CASE EVENT DATE: 20170606
